FAERS Safety Report 5032859-1 (Version None)
Quarter: 2006Q2

REPORT INFORMATION
  Report Type: 
  Country: None (occurrence: None)
  Receive Date: 20060622
  Receipt Date: 20060517
  Transmission Date: 20061013
  Serious: Yes (Death)
  Sender: FDA-Public Use
  Company Number: FR-GLAXOSMITHKLINE-B0424578A

PATIENT
  Age: 77 Year
  Sex: Male
  Weight: 80 kg

DRUGS (3)
  1. ARIXTRA [Suspect]
     Indication: DEEP VEIN THROMBOSIS
     Dosage: 7.5MG PER DAY
     Route: 058
     Dates: start: 20060426, end: 20060505
  2. PREVISCAN [Suspect]
     Indication: DEEP VEIN THROMBOSIS
     Dosage: 1UNIT SEE DOSAGE TEXT
     Route: 048
     Dates: start: 20060429, end: 20060506
  3. PROFENID [Concomitant]
     Indication: DRUG USE FOR UNKNOWN INDICATION
     Dosage: 1INJ SINGLE DOSE
     Dates: start: 20060507, end: 20060507

REACTIONS (12)
  - ACTIVATED PARTIAL THROMBOPLASTIN TIME PROLONGED [None]
  - CARDIAC OUTPUT DECREASED [None]
  - DISSEMINATED INTRAVASCULAR COAGULATION [None]
  - FACTOR V DEFICIENCY [None]
  - GROIN PAIN [None]
  - HEPATIC FAILURE [None]
  - LACTIC ACIDOSIS [None]
  - MOBILITY DECREASED [None]
  - MULTI-ORGAN FAILURE [None]
  - MUSCLE HAEMORRHAGE [None]
  - PROTHROMBIN LEVEL DECREASED [None]
  - RENAL FAILURE [None]
